APPROVED DRUG PRODUCT: PROPOXYPHENE COMPOUND 65
Active Ingredient: ASPIRIN; CAFFEINE; PROPOXYPHENE HYDROCHLORIDE
Strength: 389MG;32.4MG;65MG
Dosage Form/Route: CAPSULE;ORAL
Application: A083077 | Product #002
Applicant: IVAX PHARMACEUTICALS INC SUB TEVA PHARMACEUTICALS USA
Approved: Dec 7, 1984 | RLD: No | RS: No | Type: DISCN